FAERS Safety Report 7682348-0 (Version None)
Quarter: 2011Q3

REPORT INFORMATION
  Report Type: 
  Country: None (occurrence: None)
  Receive Date: 20110815
  Receipt Date: 20110805
  Transmission Date: 20111222
  Serious: Yes (Other)
  Sender: FDA-Public Use
  Company Number: US-BRISTOL-MYERS SQUIBB COMPANY-15950504

PATIENT
  Age: 81 Year
  Sex: Male
  Weight: 75 kg

DRUGS (8)
  1. FISH OIL [Concomitant]
  2. MIRALAX [Concomitant]
  3. XANAX [Concomitant]
  4. SYNTHROID [Concomitant]
  5. CENTRUM SILVER [Concomitant]
  6. PREDNISONE [Concomitant]
  7. METOPROLOL TARTRATE [Concomitant]
  8. YERVOY [Suspect]
     Indication: METASTATIC MALIGNANT MELANOMA
     Dosage: 2 INF: 20JUL2011 3 RD: 10AUG2011
     Dates: start: 20110629

REACTIONS (1)
  - HEPATOMEGALY [None]
